FAERS Safety Report 19287354 (Version 2)
Quarter: 2021Q2

REPORT INFORMATION
  Report Type: Spontaneous
  Country: IL (occurrence: IL)
  Receive Date: 20210521
  Receipt Date: 20210610
  Transmission Date: 20210717
  Serious: Yes (Hospitalization, Other)
  Sender: FDA-Public Use
  Company Number: IL-FOUNDATIONCONSUMERHC-2021-IL-000022

PATIENT
  Age: 39 Year
  Sex: Female

DRUGS (1)
  1. LEVONORGESTREL (UNSPECIFIED) [Suspect]
     Active Substance: LEVONORGESTREL
     Indication: POST COITAL CONTRACEPTION
     Route: 048
     Dates: start: 20210322, end: 20210322

REACTIONS (5)
  - Breast tenderness [Recovered/Resolved]
  - Facial paralysis [Recovering/Resolving]
  - Vaginal haemorrhage [Recovered/Resolved]
  - Vulvovaginal candidiasis [Unknown]
  - Cerebrovascular accident [Unknown]

NARRATIVE: CASE EVENT DATE: 202104
